FAERS Safety Report 13553262 (Version 1)
Quarter: 2017Q2

REPORT INFORMATION
  Report Type: Report from Study
  Country: IT (occurrence: IT)
  Receive Date: 20170517
  Receipt Date: 20170517
  Transmission Date: 20170830
  Serious: Yes (Hospitalization)
  Sender: FDA-Public Use
  Company Number: IT-ACCORD-051430

PATIENT
  Age: 19 Year
  Sex: Female

DRUGS (1)
  1. ESCITALOPRAM [Suspect]
     Active Substance: ESCITALOPRAM OXALATE
     Indication: DEPRESSION
     Dosage: 200 MG TOTAL
     Route: 048

REACTIONS (5)
  - Intentional overdose [Unknown]
  - Nausea [Unknown]
  - Drug use disorder [Unknown]
  - Electrocardiogram QT prolonged [Unknown]
  - Tremor [Unknown]

NARRATIVE: CASE EVENT DATE: 20170418
